FAERS Safety Report 8707563 (Version 2)
Quarter: 2013Q4

REPORT INFORMATION
  Report Type: Spontaneous
  Country: US (occurrence: US)
  Receive Date: 20120805
  Receipt Date: 20131031
  Transmission Date: 20140711
  Serious: No
  Sender: FDA-Public Use
  Company Number: US-009507513-2012SP036497

PATIENT
  Sex: Female
  Weight: 54.88 kg

DRUGS (8)
  1. CLARITIN REDITABS [Suspect]
     Indication: SEASONAL ALLERGY
     Dosage: 10 MG, QD
     Route: 048
     Dates: start: 201205, end: 201206
  2. CLARITIN REDITABS [Suspect]
     Indication: MYCOTIC ALLERGY
  3. CLARITIN REDITABS [Suspect]
     Indication: HYPERSENSITIVITY
  4. SYNTHROID [Concomitant]
     Indication: THYROID DISORDER
     Dosage: UNK, UNKNOWN
  5. CHOLECALCIFEROL [Concomitant]
     Indication: VITAMIN D DEFICIENCY
     Dosage: 2000 IU, UNK
  6. CALCITAB [Concomitant]
     Indication: PRODUCT USED FOR UNKNOWN INDICATION
     Dosage: 1200 MG, UNK
  7. CALCIUM (UNSPECIFIED) [Concomitant]
     Indication: PRODUCT USED FOR UNKNOWN INDICATION
     Dosage: UNK, UNKNOWN
  8. ICAPS [Concomitant]
     Indication: MACULAR DEGENERATION
     Dosage: UNK, UNKNOWN

REACTIONS (1)
  - Therapeutic product ineffective [Unknown]
